FAERS Safety Report 20461385 (Version 1)
Quarter: 2022Q1

REPORT INFORMATION
  Report Type: Report from Study
  Country: US (occurrence: US)
  Receive Date: 20220211
  Receipt Date: 20220211
  Transmission Date: 20220424
  Serious: Yes (Death, Hospitalization, Other)
  Sender: FDA-Public Use
  Company Number: US-BoehringerIngelheim-2022-BI-153256

PATIENT
  Age: 71 Year
  Sex: Female

DRUGS (1)
  1. AFATINIB [Suspect]
     Active Substance: AFATINIB
     Indication: Neoplasm
     Dosage: CYCLE 28 DAYS
     Route: 048
     Dates: start: 20161228, end: 20170121

REACTIONS (8)
  - Death [Fatal]
  - Acute kidney injury [Unknown]
  - Blood creatinine increased [Unknown]
  - Dehydration [Unknown]
  - Hypotension [Unknown]
  - Hypoxia [Unknown]
  - Respiratory failure [Unknown]
  - Diarrhoea [Unknown]

NARRATIVE: CASE EVENT DATE: 20170116
